FAERS Safety Report 21071607 (Version 2)
Quarter: 2022Q3

REPORT INFORMATION
  Report Type: Report from Study
  Country: US (occurrence: US)
  Receive Date: 20220712
  Receipt Date: 20220810
  Transmission Date: 20221027
  Serious: Yes (Other)
  Sender: FDA-Public Use
  Company Number: US-BRISTOL-MYERS SQUIBB COMPANY-2022-067420

PATIENT
  Age: 70 Year
  Sex: Male
  Weight: 74.66 kg

DRUGS (3)
  1. REVLIMID [Suspect]
     Active Substance: LENALIDOMIDE
     Indication: Plasma cell myeloma
     Dosage: FREQUENCY: FOR 21 DAYS, 7 DAYS OFF.
     Route: 048
     Dates: start: 20200813
  2. REVLIMID [Suspect]
     Active Substance: LENALIDOMIDE
     Dosage: DAILY FOR 21 DAYS THEN 7 DAYS OFF
     Route: 048
     Dates: start: 20200813
  3. REVLIMID [Suspect]
     Active Substance: LENALIDOMIDE
     Dosage: 2 WEEK OFF/2 WEEK ON
     Route: 065

REACTIONS (3)
  - Arthropathy [Unknown]
  - Full blood count abnormal [Unknown]
  - Off label use [Unknown]

NARRATIVE: CASE EVENT DATE: 20220414
